FAERS Safety Report 6716922-2 (Version None)
Quarter: 2010Q2

REPORT INFORMATION
  Report Type: 
  Country: None (occurrence: None)
  Receive Date: 20100510
  Receipt Date: 20100504
  Transmission Date: 20101027
  Serious: Yes (Hospitalization)
  Sender: FDA-Public Use
  Company Number: TR-NOVEN-10TR001308

PATIENT
  Age: 22 Year
  Sex: Male

DRUGS (3)
  1. PAROXETINE HCL [Suspect]
     Indication: DEPRESSION
     Dosage: 20 MG, QD
  2. CHLORPHENAM. MAL. W/PARACETAM./PSEUDOEPH. HCL [Suspect]
     Indication: INFLUENZA LIKE ILLNESS
     Dosage: 4 MG, 500 MG, 60 MG DAILY
     Route: 065
  3. DIAZEPAM [Concomitant]

REACTIONS (18)
  - BLOOD CREATINE PHOSPHOKINASE INCREASED [None]
  - CHILLS [None]
  - CONFUSIONAL STATE [None]
  - FATIGUE [None]
  - HYPERTHERMIA [None]
  - LOSS OF CONSCIOUSNESS [None]
  - MOOD ALTERED [None]
  - MYOCLONUS [None]
  - MYOGLOBIN BLOOD INCREASED [None]
  - MYOGLOBINURIA [None]
  - NAUSEA [None]
  - RENAL FAILURE ACUTE [None]
  - RHABDOMYOLYSIS [None]
  - SEROTONIN SYNDROME [None]
  - TREMOR [None]
  - UNRESPONSIVE TO STIMULI [None]
  - URINE OUTPUT DECREASED [None]
  - VOMITING [None]
